FAERS Safety Report 8049134-3 (Version None)
Quarter: 2012Q1

REPORT INFORMATION
  Report Type: 
  Country: None (occurrence: None)
  Receive Date: 20120117
  Receipt Date: 20120106
  Transmission Date: 20120608
  Serious: Yes (Other)
  Sender: FDA-Public Use
  Company Number: DE-AMGEN-DEUSP2011066520

PATIENT
  Age: 55 Year
  Sex: Male
  Weight: 70 kg

DRUGS (6)
  1. METHOTREXATE [Suspect]
     Dosage: 5 MG, WEEKLY
     Dates: start: 20111201
  2. ENBREL [Suspect]
     Dosage: 50 MG, WEEKLY
     Route: 058
     Dates: start: 20100701, end: 20100901
  3. ENBREL [Suspect]
     Dosage: 100 MG, WEEKLY
     Route: 058
     Dates: start: 20100201, end: 20100601
  4. ENBREL [Suspect]
     Indication: PSORIASIS
     Dosage: 100 MG, WEEKLY
     Route: 058
     Dates: start: 20101001, end: 20110101
  5. METHOTREXATE [Suspect]
     Dosage: 15 MG, WEEKLY
     Dates: start: 19890101, end: 20111001
  6. ENBREL [Suspect]
     Indication: PSORIATIC ARTHROPATHY
     Dosage: 50 MG, WEEKLY
     Route: 058
     Dates: start: 20110201, end: 20111001

REACTIONS (3)
  - COLITIS [None]
  - INTESTINAL HAEMORRHAGE [None]
  - LATENT TUBERCULOSIS [None]
